FAERS Safety Report 20316753 (Version 1)
Quarter: 2022Q1

REPORT INFORMATION
  Report Type: Spontaneous
  Country: CA (occurrence: CA)
  Receive Date: 20220110
  Receipt Date: 20220110
  Transmission Date: 20220423
  Serious: Yes (Other)
  Sender: FDA-Public Use
  Company Number: None

PATIENT

DRUGS (2)
  1. FLUOROURACIL [Suspect]
     Active Substance: FLUOROURACIL
     Indication: Product used for unknown indication
     Route: 042
  2. DEXTROSE [Suspect]
     Active Substance: DEXTROSE
     Indication: Medication dilution
     Route: 042

REACTIONS (2)
  - Air embolism [Unknown]
  - Device issue [Unknown]
